FAERS Safety Report 15002150 (Version 1)
Quarter: 2018Q2

REPORT INFORMATION
  Report Type: Spontaneous
  Country: DE (occurrence: DE)
  Receive Date: 20180612
  Receipt Date: 20180612
  Transmission Date: 20180711
  Serious: Yes (Hospitalization)
  Sender: FDA-Public Use
  Company Number: DE-TEVA-2018-DE-904569

PATIENT
  Age: 85 Year
  Sex: Female

DRUGS (13)
  1. DEKRISTOL 20000 I.E. [Concomitant]
     Dosage: 20000 IE
  2. FUROSEMID [Concomitant]
     Active Substance: FUROSEMIDE
     Dosage: 80 MILLIGRAM DAILY; 40MG
  3. SITAGLIPTIN [Concomitant]
     Active Substance: SITAGLIPTIN
     Dosage: 50 MILLIGRAM DAILY;
  4. ASS 100 [Concomitant]
     Active Substance: ASPIRIN
     Dosage: 100 MILLIGRAM DAILY;
  5. VOCADO [Concomitant]
     Active Substance: AMLODIPINE BESYLATE\OLMESARTAN MEDOXOMIL
     Dosage: 40/10 MG
  6. MOXONIDINE [Concomitant]
     Active Substance: MOXONIDINE
     Dosage: .3 MILLIGRAM DAILY;
  7. THYRONAJOD [Concomitant]
     Active Substance: LEVOTHYROXINE SODIUM\POTASSIUM IODIDE
     Dosage: 50/12.5 ?G,
  8. FENTANYL. [Suspect]
     Active Substance: FENTANYL
     Dosage: 2400 MICROGRAM DAILY;
     Route: 062
  9. MADOPAR DEPOT [Suspect]
     Active Substance: BENSERAZIDE HYDROCHLORIDE\LEVODOPA
     Dosage: 100/25 MG, 0-0-0-1
  10. PANTOPRAZOL [Concomitant]
     Active Substance: PANTOPRAZOLE SODIUM
     Dosage: 80 MILLIGRAM DAILY;
  11. AMITRIPTYLINE [Suspect]
     Active Substance: AMITRIPTYLINE
     Dosage: 100 MILLIGRAM DAILY;
  12. MADOPAR T [Suspect]
     Active Substance: BENSERAZIDE HYDROCHLORIDE\LEVODOPA
     Dosage: 50/12.5 MG,
  13. LACTULOSE. [Concomitant]
     Active Substance: LACTULOSE
     Dosage: NK MG, BEDARF

REACTIONS (3)
  - Fall [Unknown]
  - Delirium [Unknown]
  - Fracture [Unknown]
